FAERS Safety Report 4449982-2 (Version None)
Quarter: 2004Q3

REPORT INFORMATION
  Report Type: 
  Country: None (occurrence: None)
  Receive Date: 20040915
  Receipt Date: 20040813
  Transmission Date: 20050211
  Serious: Yes (Other)
  Sender: FDA-Public Use
  Company Number: AU-ROCHE-377439

PATIENT
  Age: 46 Year
  Sex: Male
  Weight: 58 kg

DRUGS (5)
  1. FUZEON [Suspect]
     Indication: HIV INFECTION
     Route: 058
     Dates: start: 20040706, end: 20040706
  2. ABACAVIR [Concomitant]
     Indication: HIV INFECTION
     Route: 048
     Dates: start: 20030623
  3. TENOFOVIR [Concomitant]
     Indication: HIV INFECTION
     Route: 048
     Dates: start: 20030623
  4. FLUCONAZOLE [Concomitant]
     Indication: HIV INFECTION
     Route: 048
     Dates: start: 20030623
  5. BACTRIM [Concomitant]
     Indication: PROPHYLAXIS
     Route: 048
     Dates: start: 20000615

REACTIONS (6)
  - ARTHRALGIA [None]
  - BACK PAIN [None]
  - CONJUNCTIVAL HYPERAEMIA [None]
  - FATIGUE [None]
  - MYALGIA [None]
  - PAIN [None]
